FAERS Safety Report 14881416 (Version 1)
Quarter: 2018Q2

REPORT INFORMATION
  Report Type: Spontaneous
  Country: US (occurrence: US)
  Receive Date: 20180425
  Receipt Date: 20180425
  Transmission Date: 20180711
  Serious: Yes (Other)
  Sender: FDA-Public Use
  Company Number: None

PATIENT
  Age: 52 Year
  Sex: Female
  Weight: 60.3 kg

DRUGS (2)
  1. DOXYCYCLINE HYCLATE. [Suspect]
     Active Substance: DOXYCYCLINE HYCLATE
     Indication: URINARY TRACT INFECTION
     Dosage: ?          QUANTITY:14 CAPSULE(S);?
     Route: 048
     Dates: start: 20180417, end: 20180418
  2. ONE-A-DAY MULTIVITAMIN [Concomitant]

REACTIONS (7)
  - Headache [None]
  - Stress [None]
  - Product label issue [None]
  - Fear [None]
  - Chest discomfort [None]
  - Blood pressure increased [None]
  - Food interaction [None]

NARRATIVE: CASE EVENT DATE: 20180421
